FAERS Safety Report 7562719-3 (Version None)
Quarter: 2011Q2

REPORT INFORMATION
  Report Type: 
  Country: None (occurrence: None)
  Receive Date: 20110622
  Receipt Date: 20110616
  Transmission Date: 20111010
  Serious: Yes (Other)
  Sender: FDA-Public Use
  Company Number: JP-PFIZER INC-2011101791

PATIENT
  Age: 85 Year
  Sex: Female
  Weight: 45.8 kg

DRUGS (17)
  1. NEUROTROPIN [Concomitant]
  2. MAGNESIUM OXIDE [Concomitant]
  3. MUCOSTA [Concomitant]
  4. KAMISHOUYOUSAN [Concomitant]
  5. LYRICA [Suspect]
     Indication: NEURALGIA
     Dosage: 75 MG, 2X/DAY
     Route: 048
     Dates: start: 20110324, end: 20110410
  6. LYRICA [Interacting]
     Dosage: 150 MG, 2X/DAY
     Route: 048
     Dates: start: 20110411, end: 20110427
  7. DEPAKENE [Interacting]
     Dosage: UNK
     Route: 048
     Dates: start: 20110315, end: 20110509
  8. IMIDAPRIL HYDROCHLORIDE [Concomitant]
     Dosage: UNK
     Dates: end: 20110509
  9. ALENDRONATE SODIUM [Concomitant]
  10. LAC B [Concomitant]
  11. WARFARIN [Concomitant]
     Dosage: UNK
     Dates: end: 20110509
  12. SERMION [Concomitant]
  13. ELCATONIN [Concomitant]
  14. PLETAL [Concomitant]
  15. OPALMON [Concomitant]
  16. ALPROSTADIL [Concomitant]
  17. RINLAXER [Concomitant]

REACTIONS (2)
  - DRUG INTERACTION [None]
  - LOSS OF CONSCIOUSNESS [None]
